FAERS Safety Report 5990599-6 (Version None)
Quarter: 2008Q4

REPORT INFORMATION
  Report Type: 
  Country: None (occurrence: None)
  Receive Date: 20081211
  Receipt Date: 20081205
  Transmission Date: 20090506
  Serious: Yes (Death, Hospitalization)
  Sender: FDA-Public Use
  Company Number: A0755255A

PATIENT
  Age: 60 Year
  Sex: Female
  Weight: 165 kg

DRUGS (3)
  1. AVANDIA [Suspect]
     Indication: TYPE 2 DIABETES MELLITUS
     Dosage: 4MG TWICE PER DAY
     Route: 048
     Dates: start: 20040301, end: 20050501
  2. DIABETA [Concomitant]
     Dates: start: 19990101, end: 20070101
  3. METFORMIN HCL [Concomitant]
     Dates: start: 20040305, end: 20070825

REACTIONS (6)
  - AORTIC VALVE SCLEROSIS [None]
  - CARDIAC FAILURE CONGESTIVE [None]
  - DYSPNOEA [None]
  - MYOCARDIAL ISCHAEMIA [None]
  - OEDEMA [None]
  - UNRESPONSIVE TO STIMULI [None]
